FAERS Safety Report 13632886 (Version 1)
Quarter: 2017Q2

REPORT INFORMATION
  Report Type: Spontaneous
  Country: US (occurrence: US)
  Receive Date: 20170531
  Receipt Date: 20170531
  Transmission Date: 20170830
  Serious: No
  Sender: FDA-Public Use
  Company Number: US-ASTELLAS-1487861

PATIENT
  Age: 71 Year
  Sex: Female

DRUGS (6)
  1. HYDROCHLOROTHIAZIDE/LOSARTAN POTASSIUM [Concomitant]
     Active Substance: HYDROCHLOROTHIAZIDE\LOSARTAN POTASSIUM
  2. PENTOXIFYLLINE ERT [Concomitant]
  3. TARCEVA [Suspect]
     Active Substance: ERLOTINIB HYDROCHLORIDE
     Route: 048
     Dates: start: 20141028
  4. SIMVASTATIN. [Concomitant]
     Active Substance: SIMVASTATIN
  5. AMLODIPINE BESYLATE. [Concomitant]
     Active Substance: AMLODIPINE BESYLATE
  6. TARCEVA [Suspect]
     Active Substance: ERLOTINIB HYDROCHLORIDE
     Indication: LUNG NEOPLASM MALIGNANT
     Route: 048
     Dates: start: 20141024

REACTIONS (5)
  - Eye irritation [Unknown]
  - Diarrhoea [Recovered/Resolved]
  - Vision blurred [Not Recovered/Not Resolved]
  - Oral pain [Not Recovered/Not Resolved]
  - Mouth ulceration [Not Recovered/Not Resolved]

NARRATIVE: CASE EVENT DATE: 201411
